FAERS Safety Report 7538183-7 (Version None)
Quarter: 2011Q2

REPORT INFORMATION
  Report Type: 
  Country: None (occurrence: None)
  Receive Date: 20110609
  Receipt Date: 20110530
  Transmission Date: 20111010
  Serious: Yes (Hospitalization, Other)
  Sender: FDA-Public Use
  Company Number: FR-PFIZER INC-2011105288

PATIENT
  Age: 63 Year
  Sex: Female
  Weight: 54 kg

DRUGS (7)
  1. IRINOTECAN HCL [Suspect]
     Indication: METASTASES TO PERITONEUM
     Dosage: 229 MG, 1X/DAY
     Route: 033
     Dates: start: 20100315, end: 20100315
  2. MITOMYCIN [Suspect]
     Indication: METASTASES TO PERITONEUM
     Dosage: 37 MG, 1X/DAY
     Route: 033
     Dates: start: 20100315, end: 20100315
  3. TENORMIN [Concomitant]
     Indication: TACHYARRHYTHMIA
  4. CORDARONE [Concomitant]
     Indication: TACHYARRHYTHMIA
  5. TPN [Concomitant]
     Indication: MALNUTRITION
  6. DIPEPTIVEN [Concomitant]
     Indication: MALNUTRITION
  7. CLAMOXYL [Concomitant]
     Indication: SPLENECTOMY

REACTIONS (1)
  - SYSTEMIC INFLAMMATORY RESPONSE SYNDROME [None]
